FAERS Safety Report 21279975 (Version 1)
Quarter: 2022Q3

REPORT INFORMATION
  Report Type: Spontaneous
  Country: US (occurrence: None)
  Receive Date: 20220831
  Receipt Date: 20220831
  Transmission Date: 20221027
  Serious: No
  Sender: FDA-Public Use
  Company Number: None

PATIENT
  Age: 44 Year
  Sex: Female
  Weight: 83.01 kg

DRUGS (17)
  1. IBRANCE [Suspect]
     Active Substance: PALBOCICLIB
     Indication: Breast cancer female
     Dosage: OTHER FREQUENCY : 21D ON 7DAY OFF;?
     Route: 048
     Dates: start: 202109
  2. BREO ELLIPTA [Concomitant]
  3. CALCIUM CARBONATE [Concomitant]
  4. CETRIZINE [Concomitant]
  5. CITALOPRAM [Concomitant]
  6. CYCLOBENZAPRINE [Concomitant]
  7. DEXILANT [Concomitant]
  8. EXEMESTANE [Concomitant]
  9. GABAPENTIN [Concomitant]
  10. HYDROCODONE-ACETAMINOPHEN [Concomitant]
  11. LEVOTHYROXINE [Concomitant]
  12. LOSARTAN [Concomitant]
  13. METHOCARBAMOL [Concomitant]
     Active Substance: METHOCARBAMOL
  14. MULTIVITAMIN [Concomitant]
  15. OLOPATADINE [Concomitant]
  16. ONDANSETRON [Concomitant]
  17. VITAMIN E [Concomitant]

REACTIONS (1)
  - Disease progression [None]
